FAERS Safety Report 7229000-3 (Version None)
Quarter: 2011Q1

REPORT INFORMATION
  Report Type: 
  Country: None (occurrence: None)
  Receive Date: 20110117
  Receipt Date: 20110104
  Transmission Date: 20110831
  Serious: Yes (Other)
  Sender: FDA-Public Use
  Company Number: PHHY2010ZA49035

PATIENT
  Sex: Female

DRUGS (1)
  1. ACLASTA [Suspect]
     Dosage: 5 MG/100ML INFUSION
     Route: 042

REACTIONS (4)
  - RASH [None]
  - VIITH NERVE PARALYSIS [None]
  - CANDIDIASIS [None]
  - VIRAL INFECTION [None]
